FAERS Safety Report 4723907-4 (Version None)
Quarter: 2005Q3

REPORT INFORMATION
  Report Type: 
  Country: None (occurrence: None)
  Receive Date: 20050722
  Receipt Date: 20050705
  Transmission Date: 20060218
  Serious: Yes (Other)
  Sender: FDA-Public Use
  Company Number: 8231

PATIENT
  Sex: Female

DRUGS (3)
  1. SEPTOCAINE [Suspect]
     Indication: LOCAL ANAESTHESIA
     Dosage: 2 CAPSULES INUECTED
  2. SEPTOCAINE [Suspect]
     Indication: TOOTH DISORDER
     Dosage: 2 CAPSULES INUECTED
  3. EPINEPHRINE [Suspect]
     Indication: DENTAL TREATMENT

REACTIONS (1)
  - HYPOAESTHESIA ORAL [None]
